FAERS Safety Report 7303817-9 (Version None)
Quarter: 2011Q1

REPORT INFORMATION
  Report Type: 
  Country: None (occurrence: None)
  Receive Date: 20110221
  Receipt Date: 20110214
  Transmission Date: 20110831
  Serious: Yes (Congenital Anomaly)
  Sender: FDA-Public Use
  Company Number: A0699869A

PATIENT
  Sex: Male

DRUGS (5)
  1. PAROXETINE HCL [Suspect]
     Indication: POSTPARTUM DEPRESSION
     Dosage: 40MG UNKNOWN
     Route: 064
  2. LEXAPRO [Concomitant]
     Route: 064
  3. PAXIL [Suspect]
     Indication: POSTPARTUM DEPRESSION
     Dosage: 40MG PER DAY
     Route: 064
     Dates: start: 20050101, end: 20061201
  4. VITAMIN AND MINERAL PRENATAL SUPPLEMENT W/ FOLIC ACID CAP [Concomitant]
     Route: 064
  5. IRON [Concomitant]
     Route: 064

REACTIONS (6)
  - BRONCHOPULMONARY DYSPLASIA [None]
  - ASTHMA [None]
  - CARDIAC MURMUR [None]
  - PREMATURE BABY [None]
  - DRUG EXPOSURE DURING PREGNANCY [None]
  - PLAGIOCEPHALY [None]
